FAERS Safety Report 6764416-0 (Version None)
Quarter: 2010Q2

REPORT INFORMATION
  Report Type: 
  Country: None (occurrence: None)
  Receive Date: 20100610
  Receipt Date: 20100604
  Transmission Date: 20101027
  Serious: Yes (Life-Threatening)
  Sender: FDA-Public Use
  Company Number: JP-ROCHE-701548

PATIENT
  Sex: Female
  Weight: 51 kg

DRUGS (11)
  1. TOCILIZUMAB [Suspect]
     Indication: RHEUMATOID ARTHRITIS
     Route: 041
     Dates: start: 20090519, end: 20090519
  2. TOCILIZUMAB [Suspect]
     Route: 041
     Dates: start: 20090617, end: 20090617
  3. TOCILIZUMAB [Suspect]
     Route: 041
     Dates: start: 20090715, end: 20090715
  4. TOCILIZUMAB [Suspect]
     Route: 041
     Dates: start: 20090812, end: 20090812
  5. TOCILIZUMAB [Suspect]
     Route: 041
     Dates: start: 20090909, end: 20090909
  6. TOCILIZUMAB [Suspect]
     Route: 041
     Dates: start: 20091007, end: 20091007
  7. TOCILIZUMAB [Suspect]
     Route: 041
     Dates: start: 20091111, end: 20091111
  8. TOCILIZUMAB [Suspect]
     Route: 041
     Dates: start: 20091215
  9. TOCILIZUMAB [Suspect]
     Route: 041
     Dates: start: 20100501
  10. RHEUMATREX [Concomitant]
     Route: 048
  11. FOLIAMIN [Concomitant]
     Dosage: DOSE FORM: PERORAL AGENT
     Route: 048

REACTIONS (2)
  - ACUTE MYOCARDIAL INFARCTION [None]
  - PAIN IN EXTREMITY [None]
